FAERS Safety Report 26101770 (Version 2)
Quarter: 2025Q4

REPORT INFORMATION
  Report Type: Report from Study
  Country: EU (occurrence: EU)
  Receive Date: 20251128
  Receipt Date: 20251201
  Transmission Date: 20260117
  Serious: Yes (Hospitalization)
  Sender: ABBVIE
  Company Number: EU-ABBVIE-6543970

PATIENT
  Age: 64 Year
  Sex: Male

DRUGS (4)
  1. FOSCARBIDOPA\FOSLEVODOPA [Suspect]
     Active Substance: FOSCARBIDOPA\FOSLEVODOPA
     Indication: Parkinson^s disease
     Dosage: CRN: 0.16 ML/H, CR: 0.19 ML/H, CRH: 0.21 ML/H, ED: 0.15 ML/H.?LAST ADMIN DATE: NOV 2025
     Route: 058
     Dates: start: 20251105
  2. FOSCARBIDOPA\FOSLEVODOPA [Suspect]
     Active Substance: FOSCARBIDOPA\FOSLEVODOPA
     Dosage: CRN: 0.15 ML/H, CR: 0.21 ML/H, CRH: 0.23 ML/H, ED: 0.15 ML.?FIRST AND LAST ADMIN DATE: NOV 2025
     Route: 058
  3. FOSCARBIDOPA\FOSLEVODOPA [Suspect]
     Active Substance: FOSCARBIDOPA\FOSLEVODOPA
     Dosage: CR: 0.22 ML/H, CRH: NONE, CRN: 0.15 ML/H, ED: 0.15 ML?FIRST AND LAST ADMIN DATE: NOV 2025
     Route: 058
  4. FOSCARBIDOPA\FOSLEVODOPA [Suspect]
     Active Substance: FOSCARBIDOPA\FOSLEVODOPA
     Dosage: CRN: 0.15 ML/H, CR: 0.22 ML/H, CRH: 0.22 ML/H, ED: 0.15 ML.?FIRST ADMIN DATE: NOV 2025
     Route: 058
     Dates: end: 20251121

REACTIONS (10)
  - Infusion site hypertrophy [Not Recovered/Not Resolved]
  - Dysarthria [Unknown]
  - On and off phenomenon [Unknown]
  - Hypokinesia [Unknown]
  - Hyperkinesia [Unknown]
  - Infusion site abscess [Unknown]
  - Dysphonia [Unknown]
  - Infusion site induration [Not Recovered/Not Resolved]
  - Obesity [Not Recovered/Not Resolved]
  - Infusion site papule [Not Recovered/Not Resolved]

NARRATIVE: CASE EVENT DATE: 20251101
